FAERS Safety Report 7287323-6 (Version None)
Quarter: 2011Q1

REPORT INFORMATION
  Report Type: 
  Country: None (occurrence: None)
  Receive Date: 20110211
  Receipt Date: 20101221
  Transmission Date: 20110831
  Serious: Yes (Hospitalization, Other)
  Sender: FDA-Public Use
  Company Number: US-BAYER-201015467NA

PATIENT
  Sex: Female
  Weight: 97.727 kg

DRUGS (1)
  1. OCELLA [Suspect]
     Indication: ORAL CONTRACEPTION
     Route: 048
     Dates: start: 20090301, end: 20090915

REACTIONS (9)
  - PULMONARY EMBOLISM [None]
  - DEEP VEIN THROMBOSIS [None]
  - OEDEMA PERIPHERAL [None]
  - DYSPNOEA [None]
  - CHEST DISCOMFORT [None]
  - HEART RATE INCREASED [None]
  - SINUS TACHYCARDIA [None]
  - GAIT DISTURBANCE [None]
  - PAIN [None]
